FAERS Safety Report 10914688 (Version 2)
Quarter: 2015Q2

REPORT INFORMATION
  Report Type: Report from Study
  Country: DE (occurrence: NL)
  Receive Date: 20150313
  Receipt Date: 20150427
  Transmission Date: 20150821
  Serious: Yes (Hospitalization, Other)
  Sender: FDA-Public Use
  Company Number: DE-ABBVIE-15P-062-1359805-00

PATIENT
  Age: 69 Year
  Sex: Female

DRUGS (1)
  1. DUODOPA [Suspect]
     Active Substance: CARBIDOPA\LEVODOPA
     Indication: PARKINSON^S DISEASE
     Dosage: 20/5MG/ML. CONTINUOUS
     Route: 050

REACTIONS (27)
  - Fatigue [Unknown]
  - Dysstasia [Unknown]
  - Freezing phenomenon [Not Recovered/Not Resolved]
  - Tremor [Unknown]
  - Device difficult to use [Unknown]
  - Parkinson^s disease [Unknown]
  - Device misuse [Unknown]
  - Incorrect dose administered [Unknown]
  - Paraesthesia [Not Recovered/Not Resolved]
  - Speech disorder [Not Recovered/Not Resolved]
  - Fear of falling [Unknown]
  - Freezing phenomenon [Unknown]
  - Dysgraphia [Unknown]
  - Device deployment issue [Unknown]
  - Speech disorder [Unknown]
  - Inappropriate schedule of drug administration [Unknown]
  - Motor dysfunction [Not Recovered/Not Resolved]
  - Bradykinesia [Not Recovered/Not Resolved]
  - Nervousness [Not Recovered/Not Resolved]
  - Somnolence [Unknown]
  - Activities of daily living impaired [Unknown]
  - Device issue [Unknown]
  - Urinary tract infection [Unknown]
  - Parkinsonism [Unknown]
  - Feeling abnormal [Unknown]
  - Depressed mood [Unknown]
  - Peritonitis [Unknown]
